FAERS Safety Report 20503513 (Version 3)
Quarter: 2022Q1

REPORT INFORMATION
  Report Type: Spontaneous
  Country: PT (occurrence: PT)
  Receive Date: 20220222
  Receipt Date: 20220318
  Transmission Date: 20220423
  Serious: Yes (Life-Threatening, Other)
  Sender: FDA-Public Use
  Company Number: PT-009507513-1812PRT010487

PATIENT
  Age: 18 Year
  Sex: Female

DRUGS (1)
  1. ETONOGESTREL [Suspect]
     Active Substance: ETONOGESTREL
     Indication: Contraception
     Dosage: ONE IMPLANT
     Route: 059
     Dates: start: 20151207

REACTIONS (19)
  - Device embolisation [Recovering/Resolving]
  - Pneumonia [Recovering/Resolving]
  - Device dislocation [Recovering/Resolving]
  - General anaesthesia [Recovering/Resolving]
  - Pleural effusion [Recovering/Resolving]
  - Pulmonary mass [Unknown]
  - Lung opacity [Unknown]
  - Atelectasis [Unknown]
  - Lymphoid tissue hyperplasia [Unknown]
  - Pleuritic pain [Unknown]
  - Nightmare [Unknown]
  - Haemoptysis [Not Recovered/Not Resolved]
  - Dyspnoea [Unknown]
  - Complication associated with device [Recovered/Resolved]
  - Complication of device removal [Recovered/Resolved]
  - Pain [Unknown]
  - Amenorrhoea [Unknown]
  - Product use issue [Recovered/Resolved]
  - Incorrect product administration duration [Unknown]

NARRATIVE: CASE EVENT DATE: 20181101
